FAERS Safety Report 19899024 (Version 1)
Quarter: 2021Q3

REPORT INFORMATION
  Report Type: Spontaneous
  Country: FR (occurrence: FR)
  Receive Date: 20210930
  Receipt Date: 20210930
  Transmission Date: 20211014
  Serious: Yes (Disabling)
  Sender: FDA-Public Use
  Company Number: FR-ABBVIE-21K-056-4097561-00

PATIENT
  Sex: Male

DRUGS (1)
  1. DEPAKINE [Suspect]
     Active Substance: VALPROATE SODIUM
     Indication: MATERNAL EXPOSURE TIMING UNSPECIFIED
     Route: 064

REACTIONS (5)
  - Speech disorder developmental [Not Recovered/Not Resolved]
  - Learning disorder [Recovered/Resolved]
  - Foetal exposure during pregnancy [Unknown]
  - Developmental delay [Recovered/Resolved]
  - Psychomotor retardation [Not Recovered/Not Resolved]
